FAERS Safety Report 19750691 (Version 1)
Quarter: 2021Q3

REPORT INFORMATION
  Report Type: Spontaneous
  Country: US (occurrence: US)
  Receive Date: 20210826
  Receipt Date: 20210826
  Transmission Date: 20211014
  Serious: Yes (Hospitalization, Other)
  Sender: FDA-Public Use
  Company Number: US-PFIZER INC-202101048215

PATIENT
  Age: 49 Year
  Sex: Female

DRUGS (2)
  1. CHANTIX [Suspect]
     Active Substance: VARENICLINE TARTRATE
     Indication: SMOKING CESSATION THERAPY
     Dosage: 1 DF, 2X/DAY
     Dates: start: 2020, end: 2020
  2. CHANTIX [Suspect]
     Active Substance: VARENICLINE TARTRATE
     Dosage: 1 DF, 2X/DAY
     Dates: start: 202011, end: 202011

REACTIONS (3)
  - Oxygen saturation decreased [Recovered/Resolved]
  - Dyspnoea [Unknown]
  - Recalled product administered [Unknown]
